FAERS Safety Report 25894212 (Version 1)
Quarter: 2025Q4

REPORT INFORMATION
  Report Type: Spontaneous
  Country: US (occurrence: US)
  Receive Date: 20251008
  Receipt Date: 20251008
  Transmission Date: 20260119
  Serious: Yes (Death, Hospitalization, Other)
  Sender: SANDOZ
  Company Number: US-SANDOZ-SDZ2025US073518

PATIENT
  Age: 84 Year
  Sex: Male

DRUGS (5)
  1. CYCLOPHOSPHAMIDE [Suspect]
     Active Substance: CYCLOPHOSPHAMIDE
     Indication: Neuroendocrine carcinoma of the skin
     Dosage: UNK
     Route: 042
  2. METHYLPREDNISOLONE [Suspect]
     Active Substance: METHYLPREDNISOLONE
     Indication: Neuroendocrine carcinoma of the skin
     Dosage: INITIAL TREATMENT WITH 3 DAYS
     Route: 042
  3. METHYLPREDNISOLONE [Suspect]
     Active Substance: METHYLPREDNISOLONE
     Dosage: A COURSE OF 5 ADDITIONAL DAYS
     Route: 042
  4. Immunoglobulin [Concomitant]
     Indication: Encephalitis brain stem
     Dosage: 5 DAYS OF INTRAVENOUS
     Route: 042
  5. Immunoglobulin [Concomitant]
     Indication: Neuroendocrine carcinoma of the skin

REACTIONS (2)
  - Intestinal obstruction [Fatal]
  - Product use in unapproved indication [Unknown]
